FAERS Safety Report 10516459 (Version 1)
Quarter: 2014Q4

REPORT INFORMATION
  Report Type: Spontaneous
  Country: US (occurrence: None)
  Receive Date: 20141003
  Receipt Date: 20141003
  Transmission Date: 20150528
  Serious: Yes (Other)
  Sender: FDA-Public Use
  Company Number: 1320614

PATIENT
  Age: 41 Year
  Sex: Female

DRUGS (6)
  1. PEG-INTERFERON ALFA 2A [Suspect]
     Active Substance: PEGINTERFERON ALFA-2A
     Indication: HEPATITIS C
     Dosage: SINGLE INJECTION (180 UG, 1 IN 1 WK) SUBCUTANEOUS
     Route: 058
  2. TELAPREVIR [Suspect]
     Active Substance: TELAPREVIR
     Indication: HEPATITIS C
     Dosage: TWO TABLETS EVERY 8 HOURLY, FOR THE FIRST 12 WEEKS,UKNOWN
  3. TENOFOVIR [Concomitant]
     Active Substance: TENOFOVIR
  4. RALTEGRAVIR [Concomitant]
     Active Substance: RALTEGRAVIR
  5. EMTRICITABINE [Concomitant]
     Active Substance: EMTRICITABINE
  6. RIBAVIRIN(RIBAVIRIN) [Suspect]
     Active Substance: RIBAVIRIN
     Indication: HEPATITIS C
     Dosage: DOSE WEIGHT-BASED RIBAVIRIN EXCEPT IN PATIENTS WITH COEXISTENT HEMATOLOGIC CONDITIONS

REACTIONS (1)
  - Psoriasis [None]
